FAERS Safety Report 19611799 (Version 1)
Quarter: 2021Q3

REPORT INFORMATION
  Report Type: Spontaneous
  Country: CN (occurrence: CN)
  Receive Date: 20210727
  Receipt Date: 20210727
  Transmission Date: 20211014
  Serious: Yes (Other)
  Sender: FDA-Public Use
  Company Number: CN-JIANGSU HENGRUI MEDICINE CO., LTD.-2114292

PATIENT
  Age: 67 Year
  Sex: Male
  Weight: 73.9 kg

DRUGS (3)
  1. GABAPENTIN. [Suspect]
     Active Substance: GABAPENTIN
     Indication: TRIGEMINAL NEURALGIA
     Route: 048
     Dates: start: 20210630, end: 20210702
  2. EPIRIZOLE HYDROCHLORIDE [Suspect]
     Active Substance: EPIRIZOLE HYDROCHLORIDE
     Route: 048
     Dates: start: 20210629, end: 20210702
  3. MECOBALAMIN [Concomitant]
     Active Substance: METHYLCOBALAMIN
     Route: 030
     Dates: start: 20210628, end: 20210711

REACTIONS (2)
  - Hypertension [Recovered/Resolved]
  - Delirium [Recovered/Resolved]

NARRATIVE: CASE EVENT DATE: 20210702
